FAERS Safety Report 4742143-9 (Version None)
Quarter: 2005Q3

REPORT INFORMATION
  Report Type: 
  Country: None (occurrence: None)
  Receive Date: 20050811
  Receipt Date: 20050302
  Transmission Date: 20060218
  Serious: No
  Sender: FDA-Public Use
  Company Number: US-GLAXOSMITHKLINE-A0547986A

PATIENT
  Age: 51 Year
  Sex: Female

DRUGS (4)
  1. PAXIL CR [Suspect]
     Dosage: 37.5MG PER DAY
     Route: 048
     Dates: start: 20040201
  2. PAXIL [Suspect]
     Route: 048
  3. AMBIEN [Concomitant]
  4. XANAX [Concomitant]

REACTIONS (5)
  - ANXIETY [None]
  - DISSOCIATION [None]
  - DIZZINESS [None]
  - INSOMNIA [None]
  - TEARFULNESS [None]
